FAERS Safety Report 7039395-1 (Version None)
Quarter: 2010Q4

REPORT INFORMATION
  Report Type: 
  Country: None (occurrence: None)
  Receive Date: 20101012
  Receipt Date: 20101001
  Transmission Date: 20110411
  Serious: Yes (Hospitalization)
  Sender: FDA-Public Use
  Company Number: FR-EISAI INC.-E3810-04123-SPO-FR

PATIENT
  Sex: Male

DRUGS (2)
  1. PARIET (RABEPRAZOLE) [Suspect]
     Route: 048
     Dates: start: 20100501, end: 20100826
  2. ROSUVASTATIN CALCIUM [Suspect]
     Route: 048
     Dates: start: 20100501, end: 20100826

REACTIONS (1)
  - RENAL FAILURE [None]
